FAERS Safety Report 25335233 (Version 1)
Quarter: 2025Q2

REPORT INFORMATION
  Report Type: Spontaneous
  Country: US (occurrence: US)
  Receive Date: 20250520
  Receipt Date: 20250520
  Transmission Date: 20250716
  Serious: Yes (Other)
  Sender: AUROBINDO
  Company Number: US-MLMSERVICE-20250428-PI493789-00095-1

PATIENT
  Age: 43 Year
  Sex: Male

DRUGS (6)
  1. HYDROXYCHLOROQUINE [Suspect]
     Active Substance: HYDROXYCHLOROQUINE
     Indication: Chronic cutaneous lupus erythematosus
     Dosage: 200 MILLIGRAM, TWO TIMES A DAY
     Route: 065
     Dates: start: 1998
  2. ACITRETIN [Concomitant]
     Active Substance: ACITRETIN
     Indication: Chronic cutaneous lupus erythematosus
     Dosage: 25 MILLIGRAM, EVERY OTHER DAY
     Route: 065
     Dates: start: 2023
  3. ACITRETIN [Concomitant]
     Active Substance: ACITRETIN
     Route: 065
     Dates: start: 2023
  4. CLOBETASOL [Concomitant]
     Active Substance: CLOBETASOL
     Indication: Excessive granulation tissue
     Route: 065
  5. Anifrolumab fnia [Concomitant]
     Indication: Chronic cutaneous lupus erythematosus
     Route: 065
     Dates: end: 202310
  6. Anifrolumab fnia [Concomitant]
     Route: 065

REACTIONS (3)
  - Cutaneous lupus erythematosus [Recovering/Resolving]
  - Lichen planus [Recovering/Resolving]
  - Drug ineffective [Unknown]

NARRATIVE: CASE EVENT DATE: 20060101
